FAERS Safety Report 4730422-0 (Version None)
Quarter: 2005Q3

REPORT INFORMATION
  Report Type: 
  Country: None (occurrence: None)
  Receive Date: 20050725
  Receipt Date: 20050413
  Transmission Date: 20060218
  Serious: No
  Sender: FDA-Public Use
  Company Number: USA050495626

PATIENT
  Age: 30 Year
  Sex: Female
  Weight: 91 kg

DRUGS (3)
  1. STRATTERA [Suspect]
     Indication: ATTENTION DEFICIT/HYPERACTIVITY DISORDER
     Dosage: 100 MG/1 DAY
     Dates: start: 20041201
  2. TOPROL-XL [Concomitant]
  3. LOESTRIN 1.5/30 [Concomitant]

REACTIONS (1)
  - AMENORRHOEA [None]
